FAERS Safety Report 6975771-0 (Version None)
Quarter: 2010Q3

REPORT INFORMATION
  Report Type: 
  Country: None (occurrence: None)
  Receive Date: 20100910
  Receipt Date: 20100902
  Transmission Date: 20110219
  Serious: Yes (Other)
  Sender: FDA-Public Use
  Company Number: JP-B.I. PHARMACEUTICALS,INC./RIDGEFIELD-2010-BP-10145YA

PATIENT
  Sex: Male

DRUGS (2)
  1. HARNAL (TAMSULOSIN) ORODISPERSABLE CR [Suspect]
     Route: 048
  2. FLAVOXATE HYDROCHLORIDE [Concomitant]

REACTIONS (1)
  - LEUKAEMIA [None]
